FAERS Safety Report 7653381-X (Version None)
Quarter: 2011Q3

REPORT INFORMATION
  Report Type: 
  Country: None (occurrence: None)
  Receive Date: 20110803
  Receipt Date: 20110728
  Transmission Date: 20111222
  Serious: No
  Sender: FDA-Public Use
  Company Number: US-PFIZER INC-2011173089

PATIENT
  Sex: Female

DRUGS (2)
  1. CRESTOR [Suspect]
     Dosage: UNK
     Dates: start: 20100501
  2. PROTONIX [Suspect]
     Indication: ABDOMINAL DISTENSION
     Dosage: UNK

REACTIONS (2)
  - DRUG INEFFECTIVE [None]
  - PAIN IN EXTREMITY [None]
